FAERS Safety Report 8093766-3 (Version None)
Quarter: 2012Q1

REPORT INFORMATION
  Report Type: 
  Country: None (occurrence: None)
  Receive Date: 20120129
  Receipt Date: 20110929
  Transmission Date: 20120608
  Serious: No
  Sender: FDA-Public Use
  Company Number: US-ABBOTT-11P-163-0859968-00

PATIENT
  Age: 58 Year
  Sex: Male

DRUGS (5)
  1. LISINOPRIL [Concomitant]
     Indication: HYPERTENSION
  2. HUMIRA [Suspect]
     Indication: RHEUMATOID ARTHRITIS
     Dates: start: 20110801
  3. PREDNISONE TAB [Concomitant]
     Indication: ARTHRALGIA
  4. PROTONIX [Concomitant]
     Indication: HIATUS HERNIA
  5. PREDNISONE TAB [Concomitant]
     Indication: CONDITION AGGRAVATED

REACTIONS (2)
  - RHEUMATOID ARTHRITIS [None]
  - SWELLING [None]
